FAERS Safety Report 7806273 (Version 2)
Quarter: 2013Q2

REPORT INFORMATION
  Report Type: Report from Study
  Country: NL (occurrence: NL)
  Receive Date: 20110209
  Receipt Date: 20130517
  Transmission Date: 20140414
  Serious: Yes (Hospitalization)
  Sender: FDA-Public Use
  Company Number: NL-CELGENEUS-114-21880-11012716

PATIENT
  Age: 77 Year
  Sex: Female
  Weight: 74 kg

DRUGS (4)
  1. REVLIMID [Suspect]
     Indication: PLASMA CELL MYELOMA
     Dosage: 5 MILLIGRAM
     Route: 048
     Dates: start: 20101217, end: 20110107
  2. MELPHALAN [Suspect]
     Indication: PLASMA CELL MYELOMA
     Dosage: 10 MILLIGRAM
     Route: 048
     Dates: start: 20101217, end: 20101219
  3. PREDNISONE [Suspect]
     Indication: PLASMA CELL MYELOMA
     Dosage: 140 MILLIGRAM
     Route: 048
     Dates: start: 20101217, end: 20101219
  4. ANTIBIOTICS [Concomitant]
     Indication: WOUND
     Route: 048
     Dates: start: 201101

REACTIONS (1)
  - Osteomyelitis [Recovered/Resolved]
